FAERS Safety Report 12624810 (Version 1)
Quarter: 2016Q3

REPORT INFORMATION
  Report Type: Spontaneous
  Country: US (occurrence: None)
  Receive Date: 20160804
  Receipt Date: 20160804
  Transmission Date: 20161109
  Serious: Yes (Life-Threatening, Hospitalization, Disabling)
  Sender: FDA-Public Use
  Company Number: None

PATIENT
  Age: 77 Year
  Sex: Female
  Weight: 68.04 kg

DRUGS (9)
  1. LEVETIRACETAM. [Suspect]
     Active Substance: LEVETIRACETAM
     Indication: SEIZURE
     Route: 048
     Dates: start: 20160304, end: 20160510
  2. MAGNESIUM [Concomitant]
     Active Substance: MAGNESIUM
  3. OXCARBAZEPINE. [Concomitant]
     Active Substance: OXCARBAZEPINE
  4. FUROSEMIDE. [Concomitant]
     Active Substance: FUROSEMIDE
  5. METOPROLOL ER [Concomitant]
     Active Substance: METOPROLOL SUCCINATE
  6. LINSINOPRIL [Concomitant]
  7. RALOXIFENE HCL [Concomitant]
     Active Substance: RALOXIFENE
  8. LORATADINE. [Concomitant]
     Active Substance: LORATADINE
  9. AREDS [Concomitant]
     Active Substance: MINERALS\VITAMINS

REACTIONS (7)
  - Disorientation [None]
  - Social avoidant behaviour [None]
  - Incontinence [None]
  - Toxicity to various agents [None]
  - Memory impairment [None]
  - Gait disturbance [None]
  - Abasia [None]

NARRATIVE: CASE EVENT DATE: 20160506
